FAERS Safety Report 7374367-9 (Version None)
Quarter: 2011Q1

REPORT INFORMATION
  Report Type: 
  Country: None (occurrence: None)
  Receive Date: 20110315
  Receipt Date: 20110228
  Transmission Date: 20110831
  Serious: Yes (Hospitalization)
  Sender: FDA-Public Use
  Company Number: CTI_01309_2011

PATIENT
  Sex: Male

DRUGS (4)
  1. SPIRIVA [Concomitant]
  2. CEFDITOREN PIVOXIL (GIASION (CEFDITOREN COMPRESSE RIVESTITE ) 200MG [Suspect]
     Indication: OROPHARYNGEAL PAIN
     Dosage: 200 MG, ORAL
     Route: 048
     Dates: start: 20100712, end: 20100712
  3. FLUARIX /01389801/ (FLUARIX (INFLUENZA VACCINE)) (NOT SPECIFIED) [Suspect]
     Indication: INFLUENZA IMMUNISATION
     Dosage: OROPHARYNGEAL PAIN, INTRAMUSCULAR
     Route: 030
     Dates: start: 20100712, end: 20100712
  4. FLUIMUCIL [Concomitant]

REACTIONS (4)
  - SYNCOPE [None]
  - DYSPNOEA [None]
  - URTICARIA [None]
  - MALAISE [None]
